FAERS Safety Report 8355327-8 (Version None)
Quarter: 2012Q2

REPORT INFORMATION
  Report Type: 
  Country: None (occurrence: None)
  Receive Date: 20120511
  Receipt Date: 20110329
  Transmission Date: 20120825
  Serious: No
  Sender: FDA-Public Use
  Company Number: US-TEVA-2011001473

PATIENT
  Sex: Male
  Weight: 86.26 kg

DRUGS (20)
  1. POTASSIUM CHLORIDE [Concomitant]
  2. CLONAZEPAM [Concomitant]
     Dates: start: 20060101
  3. MIRTAZAPINE [Concomitant]
     Dates: start: 20040101
  4. VITAMIN B COMPLEX CAP [Concomitant]
  5. ATENOLOL [Concomitant]
     Dates: start: 20070101
  6. DIOVAN [Concomitant]
     Dates: start: 20050101
  7. QVAR 40 [Concomitant]
     Dates: start: 20110101
  8. GLUCOSAMINE [Concomitant]
     Dates: start: 20101201
  9. ZYPREXA [Concomitant]
     Dates: start: 20070101
  10. FISH OIL [Concomitant]
  11. FUROSEMIDE [Concomitant]
  12. PERCOCET [Concomitant]
     Dates: start: 20060101
  13. COMBIVENT [Concomitant]
     Dates: start: 20010101
  14. NUVIGIL [Suspect]
     Indication: NARCOLEPSY
     Dosage: 500 MILLIGRAM;
     Route: 048
     Dates: start: 20100301
  15. SIMVASTATIN [Concomitant]
     Dates: start: 20070101
  16. LEVOTHYROXINE SODIUM [Concomitant]
     Dates: start: 20090101
  17. VITAMIN D [Concomitant]
  18. LAMOTRIGINE [Concomitant]
     Dates: start: 20070101
  19. ALPRAZOLAM [Concomitant]
     Dates: start: 20070101
  20. PRAZOSIN HCL [Concomitant]
     Dates: start: 20090101

REACTIONS (3)
  - DRUG INEFFECTIVE [None]
  - DRUG PRESCRIBING ERROR [None]
  - MIGRAINE [None]
